FAERS Safety Report 4764493-2 (Version None)
Quarter: 2005Q3

REPORT INFORMATION
  Report Type: 
  Country: None (occurrence: None)
  Receive Date: 20050909
  Receipt Date: 20050829
  Transmission Date: 20060218
  Serious: Yes (Other)
  Sender: FDA-Public Use
  Company Number: 2005UW12761

PATIENT
  Age: 68 Year
  Sex: Female
  Weight: 67.1 kg

DRUGS (2)
  1. CRESTOR [Suspect]
     Indication: BLOOD CHOLESTEROL
     Route: 048
     Dates: start: 20040804, end: 20041029
  2. ACTONEL [Concomitant]

REACTIONS (1)
  - PANCREATIC CARCINOMA [None]
